FAERS Safety Report 5839992-2 (Version None)
Quarter: 2008Q3

REPORT INFORMATION
  Report Type: 
  Country: None (occurrence: None)
  Receive Date: 20080807
  Receipt Date: 20080807
  Transmission Date: 20090109
  Serious: No
  Sender: FDA-Public Use
  Company Number: None

PATIENT
  Sex: Male
  Weight: 35.45 kg

DRUGS (2)
  1. VYVANSE [Suspect]
     Indication: ATTENTION DEFICIT/HYPERACTIVITY DISORDER
     Dosage: 30MG Q AM PO
     Route: 048
     Dates: start: 20080724, end: 20080725
  2. EX-LAX [Concomitant]

REACTIONS (6)
  - AMNESIA [None]
  - COGNITIVE DISORDER [None]
  - EMOTIONAL DISORDER [None]
  - FATIGUE [None]
  - MOTOR DYSFUNCTION [None]
  - PARANOIA [None]
